FAERS Safety Report 20054539 (Version 1)
Quarter: 2021Q4

REPORT INFORMATION
  Report Type: Spontaneous
  Country: US (occurrence: None)
  Receive Date: 20211110
  Receipt Date: 20211110
  Transmission Date: 20220303
  Serious: Yes (Disabling)
  Sender: FDA-Public Use
  Company Number: None

PATIENT
  Age: 14 Year

DRUGS (1)
  1. SINGULAIR [Suspect]
     Active Substance: MONTELUKAST SODIUM
     Indication: Rhinitis allergic
     Route: 048

REACTIONS (5)
  - Tic [None]
  - Obsessive-compulsive disorder [None]
  - Depression [None]
  - Anxiety [None]
  - Tourette^s disorder [None]

NARRATIVE: CASE EVENT DATE: 20140409
